FAERS Safety Report 14032113 (Version 2)
Quarter: 2017Q4

REPORT INFORMATION
  Report Type: Spontaneous
  Country: JP (occurrence: JP)
  Receive Date: 20171002
  Receipt Date: 20171006
  Transmission Date: 20180321
  Serious: Yes (Other)
  Sender: FDA-Public Use
  Company Number: JP-PFIZER INC-2017SE02796

PATIENT
  Age: 73 Year
  Sex: Male
  Weight: 47 kg

DRUGS (12)
  1. DOBUTAMINE [Suspect]
     Active Substance: DOBUTAMINE\DOBUTAMINE HYDROCHLORIDE
     Dosage: 2 G, DAILY
     Route: 041
     Dates: start: 20160708, end: 20160721
  2. SEROQUEL [Suspect]
     Active Substance: QUETIAPINE FUMARATE
     Indication: DELIRIUM
     Dosage: 25 MG, 2X/DAY
     Route: 048
     Dates: start: 20160810, end: 20160814
  3. SEROQUEL [Suspect]
     Active Substance: QUETIAPINE FUMARATE
     Dosage: 75 MG, 2X/DAY
     Route: 048
     Dates: start: 20160815, end: 20160827
  4. DOBUTAMINE [Suspect]
     Active Substance: DOBUTAMINE\DOBUTAMINE HYDROCHLORIDE
     Indication: CARDIAC FAILURE
     Dosage: UNK
     Route: 041
     Dates: start: 2016, end: 2016
  5. LASIX [Suspect]
     Active Substance: FUROSEMIDE
     Indication: CARDIAC FAILURE
     Dosage: UNK
     Route: 042
     Dates: start: 2016, end: 2016
  6. MINOMYCIN [Suspect]
     Active Substance: MINOCYCLINE HYDROCHLORIDE
     Dosage: 100 MG, 2X/DAY
     Route: 041
     Dates: start: 20160818, end: 20160902
  7. CEFEPIME HYDROCHLORIDE. [Suspect]
     Active Substance: CEFEPIME HYDROCHLORIDE
     Indication: INFECTIOUS PLEURAL EFFUSION
     Dosage: 2 G, 2X/DAY
     Route: 041
     Dates: start: 20160729, end: 20160817
  8. HANP [Suspect]
     Active Substance: CARPERITIDE
     Indication: CARDIAC FAILURE
     Dosage: UNK
     Route: 041
     Dates: start: 2016, end: 2016
  9. HANP [Suspect]
     Active Substance: CARPERITIDE
     Dosage: 0.02 G, DAILY
     Route: 041
     Dates: start: 20160820, end: 20160917
  10. LASIX [Suspect]
     Active Substance: FUROSEMIDE
     Dosage: 20 MG, 1X/DAY
     Route: 042
     Dates: start: 20160724, end: 20160826
  11. MEROPEN [Suspect]
     Active Substance: MEROPENEM
     Dosage: 1 G, 2X/DAY
     Route: 041
     Dates: start: 20160830, end: 20160904
  12. MEROPEN [Suspect]
     Active Substance: MEROPENEM
     Indication: PNEUMONIA
     Dosage: UNK
     Route: 041
     Dates: start: 201607, end: 201607

REACTIONS (7)
  - Acute kidney injury [Recovered/Resolved]
  - Renal tubular necrosis [Recovered/Resolved]
  - Anuria [Recovered/Resolved]
  - Delirium [Recovered/Resolved]
  - Infectious pleural effusion [Recovered/Resolved]
  - Pneumonia aspiration [Recovered/Resolved]
  - Product use in unapproved indication [Recovered/Resolved]

NARRATIVE: CASE EVENT DATE: 2016
